FAERS Safety Report 6819311 (Version 4)
Quarter: 2017Q1

REPORT INFORMATION
  Report Type: Spontaneous
  Country: JP (occurrence: JP)
  Receive Date: 20081124
  Receipt Date: 20170213
  Transmission Date: 20170429
  Serious: Yes (Life-Threatening, Other)
  Sender: FDA-Public Use
  Company Number: JP-BRISTOL-MYERS SQUIBB COMPANY-14416796

PATIENT
  Age: 48 Year
  Sex: Female

DRUGS (11)
  1. FLUORO URACIL [Suspect]
     Active Substance: FLUOROURACIL
     Indication: BREAST CANCER
     Dosage: INITIATED ON 24FEB05.  COURSE:4
     Route: 041
     Dates: start: 20050509, end: 20050509
  2. EPIRUBICIN HCL [Suspect]
     Active Substance: EPIRUBICIN HYDROCHLORIDE
     Indication: BREAST CANCER
     Dosage: INITIATED ON 24FEB05.  COURSE:4
     Route: 041
     Dates: start: 20050509, end: 20050509
  3. TAXOL [Suspect]
     Active Substance: PACLITAXEL
     Indication: BREAST CANCER
     Dosage: INITIATED ON 21OCT04.COURSE:4
     Route: 041
     Dates: start: 20050127, end: 20050127
  4. ENDOXAN [Suspect]
     Active Substance: CYCLOPHOSPHAMIDE
     Indication: BREAST CANCER
     Dosage: INITIATED ON 24FEB05.  COURSE:4
     Route: 041
     Dates: start: 20050509, end: 20050509
  5. ARIMIDEX [Suspect]
     Active Substance: ANASTROZOLE
     Indication: BREAST CANCER
     Dosage: UNK
     Route: 048
  6. CHLOR-TRIMETON [Concomitant]
     Active Substance: CHLORPHENIRAMINE MALEATE
     Indication: PRODUCT USED FOR UNKNOWN INDICATION
     Dosage: 10 MG, Q4WK
     Route: 041
     Dates: start: 20041021, end: 20050127
  7. ZOFRAN [Concomitant]
     Active Substance: ONDANSETRON HYDROCHLORIDE
     Indication: PRODUCT USED FOR UNKNOWN INDICATION
     Dosage: GIVEN ON 21OCT04-27JAN05:3/4WEEK
     Route: 041
     Dates: start: 20050224, end: 20050509
  8. DECADRON [Concomitant]
     Active Substance: DEXAMETHASONE
     Indication: PRODUCT USED FOR UNKNOWN INDICATION
     Dosage: 8MG,3/4WEEK,21OCT04-27JAN05.4MG:1/1DAY,25FEB05-13MAY05,ORAL.
     Route: 041
     Dates: start: 20050224, end: 20050509
  9. NOLVADEX [Concomitant]
     Active Substance: TAMOXIFEN CITRATE
     Indication: HORMONE THERAPY
     Dosage: 20 MG, QD
     Route: 048
     Dates: start: 20050601, end: 20061027
  10. ZOFRAN [Concomitant]
     Active Substance: ONDANSETRON HYDROCHLORIDE
     Indication: PRODUCT USED FOR UNKNOWN INDICATION
     Dosage: 4 MG, QD
     Route: 048
     Dates: start: 20050225, end: 20050513
  11. ZANTAC [Concomitant]
     Active Substance: RANITIDINE HYDROCHLORIDE
     Indication: PRODUCT USED FOR UNKNOWN INDICATION
     Dosage: 50 MG, Q4WK
     Route: 041
     Dates: start: 20041021, end: 20050127

REACTIONS (1)
  - Acute myeloid leukaemia [Unknown]

NARRATIVE: CASE EVENT DATE: 20061026
